FAERS Safety Report 11364873 (Version 1)
Quarter: 2015Q3

REPORT INFORMATION
  Report Type: Spontaneous
  Country: US (occurrence: US)
  Receive Date: 20150811
  Receipt Date: 20150811
  Transmission Date: 20151125
  Serious: Yes (Other)
  Sender: FDA-Public Use
  Company Number: US-BAUSCH-BL-2015-018888

PATIENT

DRUGS (1)
  1. RUCONEST [Suspect]
     Active Substance: HUMAN C1-ESTERASE INHIBITOR
     Indication: HEREDITARY ANGIOEDEMA
     Route: 064
     Dates: start: 20150710, end: 20150710

REACTIONS (2)
  - Weight decreased [Unknown]
  - Maternal drugs affecting foetus [Unknown]

NARRATIVE: CASE EVENT DATE: 201507
